FAERS Safety Report 9366066 (Version 1)
Quarter: 2013Q2

REPORT INFORMATION
  Report Type: Spontaneous
  Country: TR (occurrence: None)
  Receive Date: 20130619
  Receipt Date: 20130619
  Transmission Date: 20140414
  Serious: Yes (Life-Threatening, Hospitalization)
  Sender: FDA-Public Use
  Company Number: VALP20130007

PATIENT
  Age: 6 Year
  Sex: Male

DRUGS (1)
  1. VALPROIC ACID (VALPROIC ACID) [Suspect]
     Indication: CONVULSION

REACTIONS (11)
  - Vomiting [None]
  - Abdominal pain [None]
  - Haematemesis [None]
  - Blood creatinine increased [None]
  - Activated partial thromboplastin time prolonged [None]
  - International normalised ratio increased [None]
  - Thrombocytopenia [None]
  - Coagulopathy [None]
  - Pancreatic enlargement [None]
  - Pancreatitis acute [None]
  - Multi-organ failure [None]
